FAERS Safety Report 5795102-1 (Version None)
Quarter: 2008Q2

REPORT INFORMATION
  Report Type: 
  Country: None (occurrence: None)
  Receive Date: 20080630
  Receipt Date: 20080527
  Transmission Date: 20081010
  Serious: No
  Sender: FDA-Public Use
  Company Number: US-BRISTOL-MYERS SQUIBB COMPANY-14146484

PATIENT
  Age: 43 Year
  Sex: Female
  Weight: 82 kg

DRUGS (9)
  1. ORENCIA [Suspect]
     Indication: SLE ARTHRITIS
     Dosage: SECOND INFUSION WAS TAKEN ON 31MAR08
     Dates: start: 20080317
  2. PLAQUENIL [Concomitant]
  3. PREDNISONE [Concomitant]
  4. AREDIA [Concomitant]
  5. LIPITOR [Concomitant]
  6. LISINOPRIL [Concomitant]
  7. ULTRACET [Concomitant]
  8. SKELAXIN [Concomitant]
  9. CYMBALTA [Concomitant]

REACTIONS (2)
  - ALOPECIA [None]
  - DRUG INEFFECTIVE [None]
